FAERS Safety Report 25882899 (Version 1)
Quarter: 2025Q4

REPORT INFORMATION
  Report Type: Report from Study
  Country: CN (occurrence: CN)
  Receive Date: 20251006
  Receipt Date: 20251006
  Transmission Date: 20260117
  Serious: Yes (Death)
  Sender: ROCHE
  Company Number: CN-ROCHE-10000398950

PATIENT
  Age: 60 Year
  Sex: Male

DRUGS (1)
  1. POLATUZUMAB VEDOTIN [Suspect]
     Active Substance: POLATUZUMAB VEDOTIN
     Indication: Diffuse large B-cell lymphoma
     Dosage: LYOPHILISATE/30MG/BOTTLE
     Route: 042
     Dates: start: 20250711, end: 20250711

REACTIONS (1)
  - Death [Fatal]

NARRATIVE: CASE EVENT DATE: 20250919
